FAERS Safety Report 6163871-7 (Version None)
Quarter: 2009Q2

REPORT INFORMATION
  Report Type: 
  Country: None (occurrence: None)
  Receive Date: 20090422
  Receipt Date: 20090410
  Transmission Date: 20091009
  Serious: Yes (Death)
  Sender: FDA-Public Use
  Company Number: FR-BRISTOL-MYERS SQUIBB COMPANY-14548630

PATIENT
  Age: 61 Year
  Sex: Male

DRUGS (8)
  1. IPILIMUMAB [Suspect]
     Indication: LUNG NEOPLASM MALIGNANT
     Route: 042
     Dates: start: 20090224, end: 20090224
  2. PLACEBO [Suspect]
     Indication: LUNG NEOPLASM MALIGNANT
     Dates: start: 20090224, end: 20090224
  3. TAXOL [Suspect]
     Indication: LUNG NEOPLASM MALIGNANT
     Route: 042
     Dates: start: 20090224, end: 20090224
  4. CARBOPLATIN [Suspect]
     Indication: LUNG NEOPLASM MALIGNANT
     Route: 042
     Dates: start: 20090224, end: 20090224
  5. ZOVIRAX [Concomitant]
     Dosage: 350 GRAMS X2
  6. ROCEPHIN [Concomitant]
  7. AMOXICILLIN TRIHYDRATE [Concomitant]
  8. SOLU-MEDROL [Concomitant]
     Dates: end: 20090329

REACTIONS (2)
  - GUILLAIN-BARRE SYNDROME [None]
  - PNEUMONIA ASPIRATION [None]
